FAERS Safety Report 25840889 (Version 1)
Quarter: 2025Q3

REPORT INFORMATION
  Report Type: Report from Study
  Country: US (occurrence: US)
  Receive Date: 20250924
  Receipt Date: 20250924
  Transmission Date: 20251020
  Serious: Yes (Other)
  Sender: ALEXION PHARMACEUTICALS
  Company Number: A202207641

PATIENT
  Age: 56 Year
  Sex: Female

DRUGS (1)
  1. STRENSIQ [Suspect]
     Active Substance: ASFOTASE ALFA
     Indication: Phosphorus metabolism disorder
     Dosage: 206 MILLIGRAM, Q3W

REACTIONS (7)
  - Multiple fractures [Unknown]
  - Pain [Unknown]
  - Foot fracture [Unknown]
  - Peripheral swelling [Unknown]
  - Tooth disorder [Unknown]
  - Injection site discolouration [Unknown]
  - Rash [Unknown]
